FAERS Safety Report 14129485 (Version 4)
Quarter: 2018Q4

REPORT INFORMATION
  Report Type: Spontaneous
  Country: GB (occurrence: GB)
  Receive Date: 20171026
  Receipt Date: 20181206
  Transmission Date: 20190204
  Serious: Yes (Life-Threatening, Hospitalization, Other)
  Sender: FDA-Public Use
  Company Number: GB-BAUSCH-BL-2017-030064

PATIENT
  Age: 29 Year
  Sex: Female

DRUGS (17)
  1. PREDNISOLONE. [Suspect]
     Active Substance: PREDNISOLONE
     Indication: ASTHMA
     Dosage: LONG-TERM USE
     Route: 048
  2. EPINEPHRINE. [Suspect]
     Active Substance: EPINEPHRINE
     Indication: ASTHMA
     Route: 065
  3. SEVOFLURANE. [Suspect]
     Active Substance: SEVOFLURANE
     Indication: ASTHMA
     Route: 055
  4. MONTELUKAST SODIUM. [Suspect]
     Active Substance: MONTELUKAST SODIUM
     Indication: ASTHMA
     Route: 048
  5. PREDNISOLONE. [Suspect]
     Active Substance: PREDNISOLONE
     Route: 048
  6. MAGNESIUM SULFATE. [Suspect]
     Active Substance: MAGNESIUM SULFATE
     Indication: ASTHMA
     Route: 042
  7. HYDROCORTISONE. [Suspect]
     Active Substance: HYDROCORTISONE
     Indication: ASTHMA
     Route: 042
  8. MONTELUKAST SODIUM. [Suspect]
     Active Substance: MONTELUKAST SODIUM
     Route: 065
  9. SALBUTAMOL [Suspect]
     Active Substance: ALBUTEROL
     Route: 042
  10. ATROVENT [Suspect]
     Active Substance: IPRATROPIUM BROMIDE
     Indication: ASTHMA
     Dosage: NEBULISATION
     Route: 065
  11. KETAMINE [Suspect]
     Active Substance: KETAMINE
     Indication: ASTHMA
     Route: 042
  12. SALBUTAMOL [Suspect]
     Active Substance: ALBUTEROL
     Indication: ASTHMA
     Dosage: NEBULISER
     Route: 065
  13. THEOPHYLLINE [Suspect]
     Active Substance: THEOPHYLLINE ANHYDROUS
     Indication: ASTHMA
     Route: 065
  14. SALBUTAMOL [Suspect]
     Active Substance: ALBUTEROL
     Indication: ASTHMA
     Dosage: NEBULISER : IN REPEATED DOSES
     Route: 065
  15. EPINEPHRINE. [Suspect]
     Active Substance: EPINEPHRINE
     Dosage: DILUTED IN SMALL INCREMENTS
     Route: 065
  16. SALBUTAMOL [Suspect]
     Active Substance: ALBUTEROL
     Dosage: 2 BOLUSES
     Route: 040
  17. KETAMINE [Suspect]
     Active Substance: KETAMINE
     Dosage: INCREASED TO 45 MICROG/KG/MIN
     Route: 042

REACTIONS (18)
  - Respiratory rate increased [Recovering/Resolving]
  - Airway peak pressure increased [Recovering/Resolving]
  - Hypercapnia [Recovering/Resolving]
  - Respiratory acidosis [Recovering/Resolving]
  - Cyanosis [Recovering/Resolving]
  - Drug ineffective [Unknown]
  - PO2 decreased [Recovering/Resolving]
  - Wheezing [Recovering/Resolving]
  - Dyspnoea [Recovering/Resolving]
  - Oxygen saturation decreased [Recovering/Resolving]
  - Blood pH decreased [Recovering/Resolving]
  - PCO2 increased [Recovering/Resolving]
  - Bronchospasm [Recovering/Resolving]
  - Lung hyperinflation [Recovering/Resolving]
  - Blood bicarbonate decreased [Recovering/Resolving]
  - Asthma [Recovering/Resolving]
  - Off label use [Unknown]
  - Blood lactic acid increased [Recovering/Resolving]
